FAERS Safety Report 10649893 (Version 1)
Quarter: 2014Q4

REPORT INFORMATION
  Report Type: Spontaneous
  Country: US (occurrence: US)
  Receive Date: 20141212
  Receipt Date: 20141212
  Transmission Date: 20150529
  Serious: No
  Sender: FDA-Public Use
  Company Number: US-LUNDBECK-DKLU1105641

PATIENT
  Sex: Female

DRUGS (2)
  1. SABRIL [Suspect]
     Active Substance: VIGABATRIN
     Indication: INFANTILE SPASMS
     Route: 048
     Dates: start: 201405
  2. SABRIL [Suspect]
     Active Substance: VIGABATRIN
     Dosage: OVERDOSE: 2500 MG ONCE
     Route: 048

REACTIONS (1)
  - Accidental overdose [Recovered/Resolved]
